FAERS Safety Report 7627346-8 (Version None)
Quarter: 2011Q3

REPORT INFORMATION
  Report Type: 
  Country: None (occurrence: None)
  Receive Date: 20110721
  Receipt Date: 20110708
  Transmission Date: 20111222
  Serious: Yes (Hospitalization)
  Sender: FDA-Public Use
  Company Number: US-ELI_LILLY_AND_COMPANY-US201106002623

PATIENT
  Sex: Female

DRUGS (13)
  1. METOPROLOL TARTRATE [Concomitant]
  2. FERROUS SULFATE TAB [Concomitant]
  3. FORTEO [Suspect]
     Indication: OSTEOPOROSIS
     Dosage: 20 UG, QD
     Dates: start: 20100701
  4. ASPIRIN [Concomitant]
     Dosage: 81 MG, UNK
  5. VITAMIN A [Concomitant]
  6. NEXIUM [Concomitant]
  7. COLACE [Concomitant]
  8. MULTI-VITAMIN [Concomitant]
  9. FORTEO [Suspect]
     Dosage: 20 UG, QD
  10. LEVOTHYROXINE SODIUM [Concomitant]
  11. TRAMADOL HCL [Concomitant]
  12. SIMVASTATIN [Concomitant]
  13. ZINC [Concomitant]

REACTIONS (5)
  - FALL [None]
  - LIMB INJURY [None]
  - GALLBLADDER DISORDER [None]
  - HOSPITALISATION [None]
  - HEAD INJURY [None]
